FAERS Safety Report 8457328-8 (Version None)
Quarter: 2012Q2

REPORT INFORMATION
  Report Type: 
  Country: None (occurrence: None)
  Receive Date: 20120621
  Receipt Date: 20120615
  Transmission Date: 20120825
  Serious: Yes (Other)
  Sender: FDA-Public Use
  Company Number: US-PFIZER INC-2012112406

PATIENT
  Sex: Female

DRUGS (5)
  1. INSULIN [Concomitant]
     Indication: DIABETES MELLITUS
     Dosage: UNK
     Dates: start: 19820101
  2. NADOLOL [Suspect]
     Indication: HEART RATE INCREASED
     Dosage: UNK
     Dates: start: 20100101
  3. CORGARD [Suspect]
     Indication: HEART RATE INCREASED
     Dosage: 40 MG, 2X/DAY
     Route: 048
     Dates: start: 19820601, end: 20100101
  4. HALDOL [Suspect]
     Indication: HEART RATE INCREASED
     Dosage: 40 MG, 2X/DAY
     Route: 048
     Dates: start: 20100101, end: 20100101
  5. VERAPAMIL [Concomitant]
     Dosage: UNK

REACTIONS (7)
  - ANXIETY [None]
  - BLOOD PRESSURE INCREASED [None]
  - MIDDLE INSOMNIA [None]
  - HYPOTHYROIDISM [None]
  - HEART RATE DECREASED [None]
  - ASTHENIA [None]
  - STRESS [None]
